FAERS Safety Report 25014020 (Version 2)
Quarter: 2025Q1

REPORT INFORMATION
  Report Type: Report from Study
  Country: US (occurrence: US)
  Receive Date: 20250226
  Receipt Date: 20250305
  Transmission Date: 20250409
  Serious: No
  Sender: SANDOZ
  Company Number: US-SANDOZ-SDZ2025US010428

PATIENT
  Age: 80 Year
  Sex: Female

DRUGS (2)
  1. GLATOPA [Suspect]
     Active Substance: GLATIRAMER ACETATE
     Indication: Multiple sclerosis
     Dosage: 40 MG,3 X WEEKLY, M-W-F
     Route: 058
     Dates: start: 20250217
  2. GLATOPA [Suspect]
     Active Substance: GLATIRAMER ACETATE
     Route: 030
     Dates: start: 20250217

REACTIONS (6)
  - Injection site swelling [Unknown]
  - Injection site pain [Recovered/Resolved]
  - Injection site pain [Not Recovered/Not Resolved]
  - Hypersensitivity [Unknown]
  - Drug ineffective [Unknown]
  - Device occlusion [Unknown]

NARRATIVE: CASE EVENT DATE: 20250217
